FAERS Safety Report 8322224-3 (Version None)
Quarter: 2012Q2

REPORT INFORMATION
  Report Type: 
  Country: None (occurrence: None)
  Receive Date: 20120430
  Receipt Date: 20120312
  Transmission Date: 20120825
  Serious: No
  Sender: FDA-Public Use
  Company Number: US-COVIDIEN/TYCO HEALTHCARE/MALLINCKRODT-T201201047

PATIENT
  Sex: Female

DRUGS (3)
  1. CELEBREX [Concomitant]
     Indication: ARTHRITIS
     Dosage: UNK
  2. HYDROCODONE BITARTRATE + ACETAMINOPHEN [Suspect]
     Indication: BACK PAIN
     Dosage: 2 TABS Q4 HRS, PRN
     Route: 048
  3. CALCIUM [Concomitant]
     Indication: SUPPLEMENTATION THERAPY
     Dosage: UNK

REACTIONS (2)
  - DIARRHOEA [None]
  - DRUG INEFFECTIVE [None]
